FAERS Safety Report 16913497 (Version 1)
Quarter: 2019Q4

REPORT INFORMATION
  Report Type: Spontaneous
  Country: US (occurrence: US)
  Receive Date: 20191014
  Receipt Date: 20191014
  Transmission Date: 20200122
  Serious: Yes (Other)
  Sender: FDA-Public Use
  Company Number: US-SUNOVION-2019SUN004298

PATIENT
  Age: 68 Year
  Sex: Female
  Weight: 72.56 kg

DRUGS (3)
  1. BROVANA [Suspect]
     Active Substance: ARFORMOTEROL TARTRATE
     Indication: ASTHMA
     Dosage: UNK
     Route: 055
  2. TRESIBA [Suspect]
     Active Substance: INSULIN DEGLUDEC
     Dosage: UNK
     Route: 065
     Dates: end: 201902
  3. TARCEVA [Concomitant]
     Active Substance: ERLOTINIB HYDROCHLORIDE

REACTIONS (7)
  - Bronchitis [Unknown]
  - Bronchial disorder [Unknown]
  - Oxygen saturation decreased [Unknown]
  - Off label use [Unknown]
  - Incorrect route of product administration [Unknown]
  - Dyspnoea [Unknown]
  - Blood glucose abnormal [Unknown]

NARRATIVE: CASE EVENT DATE: 201902
